FAERS Safety Report 5853260-4 (Version None)
Quarter: 2008Q3

REPORT INFORMATION
  Report Type: 
  Country: None (occurrence: None)
  Receive Date: 20080820
  Receipt Date: 20080806
  Transmission Date: 20090109
  Serious: Yes (Other)
  Sender: FDA-Public Use
  Company Number: SPV1-2008-01670

PATIENT
  Age: 38 Year
  Sex: Female
  Weight: 68 kg

DRUGS (4)
  1. LIALDA [Suspect]
     Indication: COLITIS
     Dosage: 1.2 G, 2X/DAY: BID, ORAL
     Route: 048
     Dates: start: 20080606
  2. LIALDA [Suspect]
     Indication: CROHN'S DISEASE
     Dosage: 1.2 G, 2X/DAY: BID, ORAL
     Route: 048
     Dates: start: 20080606
  3. PROTONIX [Concomitant]
  4. ASPIRIN [Concomitant]

REACTIONS (5)
  - ALOPECIA [None]
  - HYPOTENSION [None]
  - LOSS OF CONSCIOUSNESS [None]
  - OFF LABEL USE [None]
  - VOMITING [None]
